FAERS Safety Report 7130491-7 (Version None)
Quarter: 2010Q4

REPORT INFORMATION
  Report Type: 
  Country: None (occurrence: None)
  Receive Date: 20101201
  Receipt Date: 20101125
  Transmission Date: 20110411
  Serious: Yes (Life-Threatening, Hospitalization, Disabling, Other)
  Sender: FDA-Public Use
  Company Number: PHHY2010CA55539

PATIENT
  Sex: Male

DRUGS (13)
  1. CLOZARIL [Suspect]
     Indication: SCHIZOPHRENIA
     Dosage: 400 MG
     Dates: start: 20030520, end: 20100811
  2. EPIVAL [Concomitant]
     Dosage: 100 MG/DAY
  3. EPIVAL [Concomitant]
     Dosage: 500
  4. ACCUPRIL [Concomitant]
     Dosage: 40 MG PER DAY
  5. ACCUPRIL [Concomitant]
     Dosage: 40 MG, BID
  6. NORVASC [Concomitant]
     Dosage: 5 MG, BID
  7. ASPIRIN [Concomitant]
     Dosage: 81 MG DAILY
  8. BISOPROLOL FUMARATE [Concomitant]
     Dosage: 5 MG/DAY
  9. MAGNESIUM [Concomitant]
     Dosage: 40 MG PER DAY
  10. LORAZEPAM [Concomitant]
     Dosage: 0.5 MG DAILY
  11. AMLODIPINE [Concomitant]
     Dosage: 5 MG, BID
  12. TECTA [Concomitant]
     Dosage: 40
  13. NITROPEUN [Concomitant]
     Dosage: 81 MG, OD

REACTIONS (7)
  - CLOSTRIDIAL INFECTION [None]
  - CONFUSIONAL STATE [None]
  - CONSTIPATION [None]
  - DYSURIA [None]
  - GAIT DISTURBANCE [None]
  - MALAISE [None]
  - NEUROLEPTIC MALIGNANT SYNDROME [None]
